FAERS Safety Report 5637707-4 (Version None)
Quarter: 2008Q1

REPORT INFORMATION
  Report Type: 
  Country: None (occurrence: None)
  Receive Date: 20080220
  Receipt Date: 20080208
  Transmission Date: 20080703
  Serious: Yes (Hospitalization, Other)
  Sender: FDA-Public Use
  Company Number: GXKR2008US01511

PATIENT
  Age: 33 Year
  Sex: Female

DRUGS (1)
  1. THIAMAZOLE (NGX)(THIAMAZOLE) UNKNOWN [Suspect]
     Indication: BASEDOW'S DISEASE

REACTIONS (10)
  - ANAPHYLACTIC REACTION [None]
  - ANGIOEDEMA [None]
  - ASTHMA [None]
  - CHEST DISCOMFORT [None]
  - COUGH [None]
  - HYPOXIA [None]
  - LARYNGEAL OEDEMA [None]
  - PRURITUS GENERALISED [None]
  - RESPIRATORY DISTRESS [None]
  - URTICARIA [None]
